FAERS Safety Report 10153240 (Version 1)
Quarter: 2014Q2

REPORT INFORMATION
  Report Type: Spontaneous
  Country: US (occurrence: US)
  Receive Date: 20140505
  Receipt Date: 20140505
  Transmission Date: 20141212
  Serious: Yes (Hospitalization)
  Sender: FDA-Public Use
  Company Number: PHHY2014US051911

PATIENT
  Age: 50 Year
  Sex: Male

DRUGS (7)
  1. TOBRAMYCIN [Suspect]
     Indication: ENDOPHTHALMITIS
     Dosage: 15 MG/ML, UNK
     Route: 061
  2. VANCOMYCIN [Suspect]
     Indication: ENDOPHTHALMITIS
     Route: 031
  3. VANCOMYCIN [Suspect]
     Dosage: 25 MG/ML, UNK
     Route: 061
  4. VANCOMYCIN [Suspect]
     Route: 042
  5. CEFTAZIDIME [Suspect]
     Indication: ENDOPHTHALMITIS
     Route: 031
  6. PREDNISOLONE [Suspect]
     Indication: ENDOPHTHALMITIS
     Route: 061
  7. GENTAMICIN [Suspect]
     Indication: ENDOPHTHALMITIS
     Route: 042

REACTIONS (3)
  - Visual impairment [Unknown]
  - Eye pain [Unknown]
  - Blindness [Unknown]
